FAERS Safety Report 18256978 (Version 1)
Quarter: 2020Q3

REPORT INFORMATION
  Report Type: Spontaneous
  Country: US (occurrence: US)
  Receive Date: 20200911
  Receipt Date: 20200911
  Transmission Date: 20201103
  Serious: No
  Sender: FDA-Public Use
  Company Number: US-ASTRAZENECA-2020SF14013

PATIENT
  Age: 27506 Day
  Sex: Male

DRUGS (2)
  1. SEROQUEL [Suspect]
     Active Substance: QUETIAPINE FUMARATE
     Indication: PRODUCT USED FOR UNKNOWN INDICATION
     Dosage: TAKING HIGHER DOSES
     Route: 048
  2. SEROQUEL [Suspect]
     Active Substance: QUETIAPINE FUMARATE
     Indication: PRODUCT USED FOR UNKNOWN INDICATION
     Dosage: TAKING ONLY 1 DAILY
     Route: 048
     Dates: start: 202008

REACTIONS (7)
  - Delusion [Unknown]
  - Anxiety [Recovered/Resolved]
  - Blood pressure increased [Unknown]
  - Confusional state [Unknown]
  - Hallucination [Unknown]
  - Parkinson^s disease psychosis [Unknown]
  - Anger [Unknown]

NARRATIVE: CASE EVENT DATE: 20200807
